FAERS Safety Report 16462361 (Version 1)
Quarter: 2019Q2

REPORT INFORMATION
  Report Type: Report from Study
  Country: GR (occurrence: GR)
  Receive Date: 20190621
  Receipt Date: 20190621
  Transmission Date: 20190711
  Serious: Yes (Hospitalization)
  Sender: FDA-Public Use
  Company Number: GR-SA-2019SA162277

PATIENT
  Age: 90 Year
  Sex: Female

DRUGS (3)
  1. GLIMEPIRIDE. [Suspect]
     Active Substance: GLIMEPIRIDE
     Indication: DIABETES MELLITUS
     Dosage: 1 DF, BID
     Route: 048
  2. GLUCOPHAGE [Concomitant]
     Active Substance: METFORMIN HYDROCHLORIDE
     Dosage: 2 DF, QD
  3. GALVUS [Concomitant]
     Active Substance: VILDAGLIPTIN
     Dosage: 1 DF, QD IN THE NOON

REACTIONS (3)
  - Blood glucose increased [Unknown]
  - Hyperosmolar state [Unknown]
  - Anaemia [Unknown]
